FAERS Safety Report 15016820 (Version 10)
Quarter: 2021Q3

REPORT INFORMATION
  Report Type: Report from Study
  Country: IT (occurrence: IT)
  Receive Date: 20180615
  Receipt Date: 20210902
  Transmission Date: 20211014
  Serious: Yes (Other)
  Sender: FDA-Public Use
  Company Number: IT-PFIZER INC-2018240479

PATIENT
  Age: 54 Year
  Sex: Male

DRUGS (9)
  1. PREDNISONE. [Suspect]
     Active Substance: PREDNISONE
     Indication: IMMUNOSUPPRESSANT DRUG THERAPY
  2. RITUXIMAB. [Suspect]
     Active Substance: RITUXIMAB
     Indication: IMMUNOSUPPRESSANT DRUG THERAPY
     Dosage: 1500 MG/M2, WEEKLY (375 MG/M2, QW4, (4 WEEKLY)
  3. RITUXIMAB. [Suspect]
     Active Substance: RITUXIMAB
     Dosage: 500 MG, EVERY 6 MONTHS
     Route: 041
  4. METHYLPREDNISOLONE SODIUM SUCCINATE. [Suspect]
     Active Substance: METHYLPREDNISOLONE SODIUM SUCCINATE
     Indication: IMMUNOSUPPRESSANT DRUG THERAPY
  5. CYCLOPHOSPHAMIDE. [Suspect]
     Active Substance: CYCLOPHOSPHAMIDE
     Indication: RETROPERITONEAL FIBROSIS
     Dosage: 500?750 MG ON DAYS 1 AND 15; 2 PULSES
     Route: 042
  6. CYCLOPHOSPHAMIDE. [Suspect]
     Active Substance: CYCLOPHOSPHAMIDE
     Indication: IMMUNOSUPPRESSANT DRUG THERAPY
  7. PREDNISONE. [Suspect]
     Active Substance: PREDNISONE
     Indication: RETROPERITONEAL FIBROSIS
     Dosage: 0.8 MG/KG, DAILY; GRADUALLY TAPERED UNTIL DISCONTINUATION IN 4 MONTHS
     Route: 048
  8. METHYLPREDNISOLONE SODIUM SUCCINATE. [Suspect]
     Active Substance: METHYLPREDNISOLONE SODIUM SUCCINATE
     Indication: RETROPERITONEAL FIBROSIS
     Dosage: 15 MG/KG, UNK; 3 PULSES
     Route: 042
  9. RITUXIMAB. [Suspect]
     Active Substance: RITUXIMAB
     Indication: RETROPERITONEAL FIBROSIS
     Dosage: 375 MG/M2
     Route: 042

REACTIONS (1)
  - Pneumonia [Recovered/Resolved]
